FAERS Safety Report 12513901 (Version 2)
Quarter: 2016Q3

REPORT INFORMATION
  Report Type: Spontaneous
  Country: US (occurrence: US)
  Receive Date: 20160630
  Receipt Date: 20160727
  Transmission Date: 20161109
  Serious: Yes (Death, Hospitalization)
  Sender: FDA-Public Use
  Company Number: US-JNJFOC-20160522858

PATIENT
  Age: 77 Year
  Sex: Male

DRUGS (4)
  1. LOVENOX [Suspect]
     Active Substance: ENOXAPARIN SODIUM
     Indication: PRODUCT USED FOR UNKNOWN INDICATION
     Route: 065
     Dates: end: 201509
  2. ASPIRIN. [Suspect]
     Active Substance: ASPIRIN
     Indication: PRODUCT USED FOR UNKNOWN INDICATION
     Route: 065
  3. XARELTO [Suspect]
     Active Substance: RIVAROXABAN
     Indication: HIP ARTHROPLASTY
     Route: 048
     Dates: start: 20150912, end: 20150921
  4. XARELTO [Suspect]
     Active Substance: RIVAROXABAN
     Indication: THROMBOSIS PROPHYLAXIS
     Route: 048
     Dates: start: 20150912, end: 20150921

REACTIONS (7)
  - Post procedural complication [Fatal]
  - Acute respiratory failure [Fatal]
  - Post procedural haemorrhage [Fatal]
  - Coagulopathy [Fatal]
  - Rectal haemorrhage [Fatal]
  - Cardiopulmonary failure [Fatal]
  - Colitis ischaemic [Unknown]

NARRATIVE: CASE EVENT DATE: 201509
